FAERS Safety Report 9267479 (Version 1)
Quarter: 2013Q2

REPORT INFORMATION
  Report Type: Spontaneous
  Country: BE (occurrence: BE)
  Receive Date: 20130502
  Receipt Date: 20130502
  Transmission Date: 20140414
  Serious: Yes (Life-Threatening, Other)
  Sender: FDA-Public Use
  Company Number: BE-ABBOTT-13P-013-1083534-00

PATIENT
  Age: 46 Year
  Sex: Male

DRUGS (9)
  1. SEVOFLURANE [Suspect]
     Indication: MAINTENANCE OF ANAESTHESIA
  2. SEVOFLURANE [Suspect]
  3. PROPOFOL [Suspect]
     Indication: GENERAL ANAESTHESIA
  4. PROPOFOL [Suspect]
  5. SUFENTANIL [Suspect]
     Indication: GENERAL ANAESTHESIA
  6. SUFENTANIL [Suspect]
  7. SUFENTANIL [Suspect]
  8. CISATRACURIUM [Suspect]
     Indication: GENERAL ANAESTHESIA
  9. REMIFENTANIL [Concomitant]
     Indication: PRODUCT USED FOR UNKNOWN INDICATION

REACTIONS (2)
  - Anaesthetic complication [Recovered/Resolved]
  - Hyperthermia malignant [Recovered/Resolved]
